FAERS Safety Report 20681427 (Version 1)
Quarter: 2022Q2

REPORT INFORMATION
  Report Type: Spontaneous
  Country: US (occurrence: US)
  Receive Date: 20220406
  Receipt Date: 20220406
  Transmission Date: 20220721
  Serious: No
  Sender: FDA-Public Use
  Company Number: US-BIOMARINAP-US-2022-142414

PATIENT
  Age: 4 Year
  Sex: Female

DRUGS (1)
  1. BRINEURA [Suspect]
     Active Substance: CERLIPONASE ALFA
     Indication: Neuronal ceroid lipofuscinosis
     Dosage: ,
     Route: 020

REACTIONS (3)
  - Gait disturbance [Recovered/Resolved]
  - Speech disorder [Recovered/Resolved]
  - Fine motor skill dysfunction [Recovered/Resolved]

NARRATIVE: CASE EVENT DATE: 20211016
